FAERS Safety Report 22046008 (Version 2)
Quarter: 2023Q1

REPORT INFORMATION
  Report Type: Spontaneous
  Country: HU (occurrence: HU)
  Receive Date: 20230228
  Receipt Date: 20230317
  Transmission Date: 20230418
  Serious: Yes (Disabling, Other)
  Sender: FDA-Public Use
  Company Number: None

PATIENT
  Sex: Female

DRUGS (9)
  1. RAMIPRIL [Suspect]
     Active Substance: RAMIPRIL
     Indication: Hypertension
     Dosage: THERAPY START DATE : NASK
     Dates: end: 20221221
  2. SOTALOL HYDROCHLORIDE [Suspect]
     Active Substance: SOTALOL HYDROCHLORIDE
     Indication: Arrhythmia
     Dosage: STRENGTH : 80 MG
  3. LERCANIDIPINE HYDROCHLORIDE [Suspect]
     Active Substance: LERCANIDIPINE HYDROCHLORIDE
     Indication: Hypertension
     Route: 065
  4. ELIQUIS [Suspect]
     Active Substance: APIXABAN
     Indication: Product used for unknown indication
     Route: 065
  5. LATANOPROST\TIMOLOL MALEATE [Suspect]
     Active Substance: LATANOPROST\TIMOLOL MALEATE
     Indication: Product used for unknown indication
     Dosage: FOR ACTIVE INGREDIENT TIMOLOL THE STRENGTH IS 5 MILLIGRAM/MILLILITER .FOR ACTIVE INGREDIENT LATANOPR
     Route: 065
  6. BUDESONIDE\FORMOTEROL FUMARATE [Suspect]
     Active Substance: BUDESONIDE\FORMOTEROL FUMARATE
     Indication: Asthma
     Dosage: DURATION : 30 MONTHS
     Dates: start: 2020, end: 20230115
  7. INSPRA [Suspect]
     Active Substance: EPLERENONE
     Indication: Cardiac failure
     Route: 065
  8. BUDESONIDE [Suspect]
     Active Substance: BUDESONIDE
     Indication: Product used for unknown indication
     Dosage: THERAPY END DATE : NASK
     Dates: start: 20230116
  9. DOXAZOSIN [Concomitant]
     Active Substance: DOXAZOSIN MESYLATE
     Indication: Hypertension
     Dates: start: 20221222

REACTIONS (29)
  - Glaucoma [Not Recovered/Not Resolved]
  - Arrhythmia [Unknown]
  - Cataract [Unknown]
  - Oropharyngeal pain [Unknown]
  - Arthralgia [Unknown]
  - Asthma [Unknown]
  - Back pain [Unknown]
  - Cough [Unknown]
  - Disturbance in attention [Unknown]
  - Dizziness [Not Recovered/Not Resolved]
  - Dyspepsia [Recovering/Resolving]
  - Dysphonia [Unknown]
  - Dyspnoea [Unknown]
  - Eosinopenia [Unknown]
  - Eye irritation [Unknown]
  - Headache [Unknown]
  - Labile blood pressure [Unknown]
  - Nausea [Unknown]
  - Palpitations [Unknown]
  - Palpitations [Unknown]
  - Pollakiuria [Recovering/Resolving]
  - Polyuria [Recovering/Resolving]
  - Pruritus [Unknown]
  - Somnolence [Unknown]
  - Tinnitus [Unknown]
  - Tremor [Unknown]
  - Vision blurred [Unknown]
  - Abdominal pain upper [Recovering/Resolving]
  - Alopecia [Unknown]
